FAERS Safety Report 4753507-1 (Version None)
Quarter: 2005Q3

REPORT INFORMATION
  Report Type: 
  Country: None (occurrence: None)
  Receive Date: 20050824
  Receipt Date: 20050809
  Transmission Date: 20060218
  Serious: Yes (Hospitalization)
  Sender: FDA-Public Use
  Company Number: GBS050818139

PATIENT
  Age: 29 Year
  Sex: Male

DRUGS (1)
  1. FLUOXETINE HCL [Suspect]
     Indication: OBSESSIVE-COMPULSIVE DISORDER
     Dosage: 60 MG
     Dates: start: 20050602, end: 20050630

REACTIONS (1)
  - AGGRESSION [None]
